FAERS Safety Report 8507397-1 (Version None)
Quarter: 2012Q3

REPORT INFORMATION
  Report Type: 
  Country: None (occurrence: None)
  Receive Date: 20120712
  Receipt Date: 20120323
  Transmission Date: 20120928
  Serious: Yes (Death)
  Sender: FDA-Public Use
  Company Number: DE-BAXTER-2012BAX002233

PATIENT
  Age: 59 Year
  Sex: Male

DRUGS (5)
  1. PHYSIONEAL 40 GLUCOSE 2,27 % W/V 22,7 MG/ML CLEARFLEX PERITONEALDIALYS [Suspect]
     Dosage: 4 HOUR DAYTIME DWELL
     Route: 033
     Dates: start: 20060610
  2. NUTRINEAL PD4 MIT 1,1% AMINOSAUREN, PERITONEALDIALYSELOSUNG IM CLEARFL [Suspect]
     Dosage: 4 HOUR DAYTIME DWELL
     Route: 033
     Dates: start: 20060610
  3. VITAMIN D [Concomitant]
  4. EXTRANEAL [Suspect]
     Dosage: 12 HR NIGHTTIME DWELL
     Route: 033
     Dates: start: 20060610
  5. PHYSIONEAL 40 GLUCOSE 3,86 % W/V 38,6 MG/ML PERITONEALDIALYSELOSUNG [Suspect]
     Dosage: 4 HOUR DAYTIME DWELL
     Route: 033
     Dates: start: 20060610

REACTIONS (4)
  - MYOCARDIAL ISCHAEMIA [None]
  - MYOCARDIAL INFARCTION [None]
  - DYSPNOEA [None]
  - PERITONITIS BACTERIAL [None]
